FAERS Safety Report 6180994-7 (Version None)
Quarter: 2009Q2

REPORT INFORMATION
  Report Type: 
  Country: None (occurrence: None)
  Receive Date: 20090501
  Receipt Date: 20090416
  Transmission Date: 20091009
  Serious: Yes (Other)
  Sender: FDA-Public Use
  Company Number: 2009AL002388

PATIENT
  Sex: Female

DRUGS (5)
  1. ZINC OXIDE OINTMENT USP (ALPHARMA) (ZINC OXIDE OINTMENT USP (ALPHARMA) [Suspect]
     Indication: VITAMIN SUPPLEMENTATION
  2. NICORETTE [Concomitant]
  3. ASCORBIC ACID [Concomitant]
  4. SMOKING CESSATION THERAPY [Concomitant]
  5. THERAPY [Concomitant]

REACTIONS (5)
  - FEELING ABNORMAL [None]
  - MALAISE [None]
  - PAIN IN EXTREMITY [None]
  - PALPITATIONS [None]
  - TREMOR [None]
